FAERS Safety Report 4851689-4 (Version None)
Quarter: 2005Q4

REPORT INFORMATION
  Report Type: 
  Country: None (occurrence: None)
  Receive Date: 20051209
  Receipt Date: 20051209
  Transmission Date: 20060501
  Serious: Yes (Life-Threatening, Hospitalization)
  Sender: FDA-Public Use
  Company Number: None

PATIENT
  Age: 59 Year
  Sex: Male
  Weight: 64.7 kg

DRUGS (2)
  1. CLOPIDOGREL [Suspect]
     Indication: CEREBROVASCULAR ACCIDENT
     Dosage: 75 MG QD PO
     Route: 048
  2. ENOXAPARIN SODIUM [Suspect]
     Indication: PROPHYLAXIS
     Dosage: 40 MG QD SQ
     Route: 058

REACTIONS (4)
  - ANGIOPATHY [None]
  - DUODENITIS [None]
  - GASTRITIS EROSIVE [None]
  - UPPER GASTROINTESTINAL HAEMORRHAGE [None]
